FAERS Safety Report 13453868 (Version 2)
Quarter: 2017Q2

REPORT INFORMATION
  Report Type: Report from Study
  Country: BE (occurrence: BE)
  Receive Date: 20170418
  Receipt Date: 20170425
  Transmission Date: 20170830
  Serious: No
  Sender: FDA-Public Use
  Company Number: BE-OTSUKA-2016_019858

PATIENT
  Age: 47 Year
  Sex: Female
  Weight: 70.3 kg

DRUGS (42)
  1. BLINDED TOLVAPTAN [Suspect]
     Active Substance: TOLVAPTAN
     Dosage: 30 MG, QD (IN EVENING)
     Route: 048
     Dates: start: 20160323, end: 20160624
  2. BLINDED TOLVAPTAN [Suspect]
     Active Substance: TOLVAPTAN
     Dosage: 30 MG, QD (IN MORNING) (TOLVAPTAN TITRATION)
     Route: 048
     Dates: start: 20160217, end: 20160220
  3. BLINDED *PLACEBO [Suspect]
     Active Substance: INVESTIGATIONAL PRODUCT
     Dosage: 90 MG, QD (IN MORNING) (TOLVAPTAN TITRATION AND RUN IN)
     Route: 048
     Dates: start: 20160229, end: 20160322
  4. BLINDED *PLACEBO [Suspect]
     Active Substance: INVESTIGATIONAL PRODUCT
     Dosage: 30 MG, QD (IN MORNING)
     Route: 048
     Dates: start: 20161122, end: 20161125
  5. BLINDED *PLACEBO [Suspect]
     Active Substance: INVESTIGATIONAL PRODUCT
     Dosage: 30 MG, QD (IN EVENING)
     Route: 048
     Dates: start: 20161126, end: 20161130
  6. BLINDED *PLACEBO [Suspect]
     Active Substance: INVESTIGATIONAL PRODUCT
     Dosage: 30 MG, QD (IN EVENING)
     Route: 048
     Dates: start: 20160323, end: 20160624
  7. BLINDED *PLACEBO [Suspect]
     Active Substance: INVESTIGATIONAL PRODUCT
     Dosage: PLACEBO, QD (IN EVENING)
     Route: 048
     Dates: start: 20160210, end: 20160216
  8. BLINDED TOLVAPTAN [Suspect]
     Active Substance: TOLVAPTAN
     Dosage: PLACEBO, QD (IN EVENING)
     Route: 048
     Dates: start: 20160210, end: 20160216
  9. BLINDED *PLACEBO [Suspect]
     Active Substance: INVESTIGATIONAL PRODUCT
     Dosage: 30 MG, QD (IN EVENING)
     Route: 048
     Dates: start: 20161122, end: 20161125
  10. EUTHYROX [Concomitant]
     Active Substance: LEVOTHYROXINE SODIUM
     Indication: THYROID DISORDER
     Dosage: 0.025 MG, QD
     Route: 048
     Dates: start: 2013
  11. BLINDED TOLVAPTAN [Suspect]
     Active Substance: TOLVAPTAN
     Dosage: 15 MG, QD (IN EVENING)(TOLVAPTAN TITRATION)
     Route: 048
     Dates: start: 20160217, end: 20160220
  12. BLINDED *PLACEBO [Suspect]
     Active Substance: INVESTIGATIONAL PRODUCT
     Dosage: 60 MG, QD (IN MORNING)
     Route: 048
     Dates: start: 20161126, end: 20161130
  13. BLINDED *PLACEBO [Suspect]
     Active Substance: INVESTIGATIONAL PRODUCT
     Dosage: 90 MG, QD (IN MORNING)
     Route: 048
     Dates: start: 20161201
  14. BLINDED TOLVAPTAN [Suspect]
     Active Substance: TOLVAPTAN
     Dosage: 90 MG, QD (IN MORNING)
     Route: 048
     Dates: start: 20161201
  15. CYCLOCUR [Concomitant]
     Indication: MENOPAUSAL SYMPTOMS PROPHYLAXIS
     Dosage: 1 DF, QD
     Route: 048
     Dates: start: 201409
  16. PERINDOPRIL [Concomitant]
     Active Substance: PERINDOPRIL
     Indication: HYPERTENSION
     Dosage: 4 MG, BID
     Route: 048
     Dates: start: 20101214
  17. BLINDED TOLVAPTAN [Suspect]
     Active Substance: TOLVAPTAN
     Indication: CONGENITAL CYSTIC KIDNEY DISEASE
     Dosage: 90 MG, QD (IN MORNING)
     Route: 048
     Dates: start: 20160323, end: 20160624
  18. BLINDED *PLACEBO [Suspect]
     Active Substance: INVESTIGATIONAL PRODUCT
     Dosage: 30 MG, QD (IN MORNING) (TOLVAPTAN TITRATION)
     Route: 048
     Dates: start: 20160217, end: 20160220
  19. BLINDED TOLVAPTAN [Suspect]
     Active Substance: TOLVAPTAN
     Dosage: 45 MG, QD (IN MORNING)(TOLVAPTAN TITRATION)
     Route: 048
     Dates: start: 20160221, end: 20160224
  20. BLINDED *PLACEBO [Suspect]
     Active Substance: INVESTIGATIONAL PRODUCT
     Dosage: 15 MG, QD (IN EVENING)(TOLVAPTAN TITRATION)
     Route: 048
     Dates: start: 20160221, end: 20160224
  21. BLINDED TOLVAPTAN [Suspect]
     Active Substance: TOLVAPTAN
     Dosage: 30 MG, QD (IN EVENING)(TOLVAPTAN TITRATION)
     Route: 048
     Dates: start: 20160225, end: 20160228
  22. BLINDED TOLVAPTAN [Suspect]
     Active Substance: TOLVAPTAN
     Dosage: 30 MG, QD (IN MORNING)
     Route: 048
     Dates: start: 20161122, end: 20161125
  23. BLINDED *PLACEBO [Suspect]
     Active Substance: INVESTIGATIONAL PRODUCT
     Dosage: 30 MG, QD (IN EVENING)
     Route: 048
     Dates: start: 20161201
  24. COPPER-CONTAINING INTRAUTERINE DEVICE (IUD) [Concomitant]
     Active Substance: COPPER
     Indication: CONTRACEPTION
     Dosage: UNK, 1 PIECE
     Route: 067
     Dates: start: 201511
  25. BLINDED *PLACEBO [Suspect]
     Active Substance: INVESTIGATIONAL PRODUCT
     Dosage: PLACEBO, QD (IN MORNING)
     Route: 048
     Dates: start: 20160210, end: 20160216
  26. BLINDED *PLACEBO [Suspect]
     Active Substance: INVESTIGATIONAL PRODUCT
     Dosage: 15 MG, QD (IN EVENING)(TOLVAPTAN TITRATION)
     Route: 048
     Dates: start: 20160217, end: 20160220
  27. BLINDED *PLACEBO [Suspect]
     Active Substance: INVESTIGATIONAL PRODUCT
     Dosage: 60 MG, QD (IN MORNING)(TOLVAPTAN TITRATION)
     Route: 048
     Dates: start: 20160225, end: 20160228
  28. BLINDED TOLVAPTAN [Suspect]
     Active Substance: TOLVAPTAN
     Dosage: 60 MG, QD (IN MORNING)(TOLVAPTAN TITRATION)
     Route: 048
     Dates: start: 20160225, end: 20160228
  29. BLINDED TOLVAPTAN [Suspect]
     Active Substance: TOLVAPTAN
     Dosage: 90 MG, QD (IN MORNING) (TOLVAPTAN TITRATION AND RUN IN)
     Route: 048
     Dates: start: 20160229, end: 20160322
  30. BLINDED TOLVAPTAN [Suspect]
     Active Substance: TOLVAPTAN
     Dosage: 30 MG, QD (IN EVENING)
     Route: 048
     Dates: start: 20161201
  31. BLINDED *PLACEBO [Suspect]
     Active Substance: INVESTIGATIONAL PRODUCT
     Indication: CONGENITAL CYSTIC KIDNEY DISEASE
     Dosage: 90 MG, QD (IN MORNING)
     Route: 048
     Dates: start: 20160323, end: 20160624
  32. BLINDED TOLVAPTAN [Suspect]
     Active Substance: TOLVAPTAN
     Dosage: 30 MG, QD (IN EVENING) (TOLVAPTAN TITRATION AND RUN IN)
     Route: 048
     Dates: start: 20160229, end: 20160322
  33. BLINDED TOLVAPTAN [Suspect]
     Active Substance: TOLVAPTAN
     Dosage: 30 MG, QD (IN EVENING)
     Route: 048
     Dates: start: 20161122, end: 20161125
  34. B-MAGNUM [Concomitant]
     Indication: PROPHYLAXIS
     Dosage: 450 MG, QD
     Route: 048
     Dates: start: 20130207
  35. BLINDED TOLVAPTAN [Suspect]
     Active Substance: TOLVAPTAN
     Dosage: PLACEBO, QD (IN MORNING)
     Route: 048
     Dates: start: 20160210, end: 20160216
  36. BLINDED TOLVAPTAN [Suspect]
     Active Substance: TOLVAPTAN
     Dosage: 15 MG, QD (IN EVENING)(TOLVAPTAN TITRATION)
     Route: 048
     Dates: start: 20160221, end: 20160224
  37. BLINDED *PLACEBO [Suspect]
     Active Substance: INVESTIGATIONAL PRODUCT
     Dosage: 30 MG, QD (IN EVENING)(TOLVAPTAN TITRATION)
     Route: 048
     Dates: start: 20160225, end: 20160228
  38. BLINDED TOLVAPTAN [Suspect]
     Active Substance: TOLVAPTAN
     Dosage: 60 MG, QD (IN MORNING)
     Route: 048
     Dates: start: 20161126, end: 20161130
  39. BLINDED TOLVAPTAN [Suspect]
     Active Substance: TOLVAPTAN
     Dosage: 30 MG, QD (IN EVENING)
     Route: 048
     Dates: start: 20161126, end: 20161130
  40. B-MAGNUM [Concomitant]
     Indication: MAGNESIUM DEFICIENCY
  41. BLINDED *PLACEBO [Suspect]
     Active Substance: INVESTIGATIONAL PRODUCT
     Dosage: 45 MG, QD (IN MORNING)(TOLVAPTAN TITRATION)
     Route: 048
     Dates: start: 20160221, end: 20160224
  42. BLINDED *PLACEBO [Suspect]
     Active Substance: INVESTIGATIONAL PRODUCT
     Dosage: 30 MG, QD (IN EVENING) (TOLVAPTAN TITRATION AND RUN IN)
     Route: 048
     Dates: start: 20160229, end: 20160322

REACTIONS (1)
  - Transaminases increased [Recovered/Resolved]

NARRATIVE: CASE EVENT DATE: 20160628
